FAERS Safety Report 13568677 (Version 1)
Quarter: 2017Q2

REPORT INFORMATION
  Report Type: Spontaneous
  Country: GB (occurrence: GB)
  Receive Date: 20170522
  Receipt Date: 20170522
  Transmission Date: 20170830
  Serious: Yes (Other)
  Sender: FDA-Public Use
  Company Number: GB-BAYER-2017-092079

PATIENT
  Age: 36 Year
  Sex: Female

DRUGS (1)
  1. ACARBOSE. [Suspect]
     Active Substance: ACARBOSE
     Indication: DUMPING SYNDROME
     Dosage: 50 MG, UNK

REACTIONS (3)
  - Amniotic cavity infection [None]
  - Off label use [None]
  - Maternal exposure during pregnancy [None]
